FAERS Safety Report 7074888-2 (Version None)
Quarter: 2010Q4

REPORT INFORMATION
  Report Type: 
  Country: None (occurrence: None)
  Receive Date: 20101029
  Receipt Date: 20101013
  Transmission Date: 20110411
  Serious: Yes (Other)
  Sender: FDA-Public Use
  Company Number: DE-AMGEN-QUU429995

PATIENT

DRUGS (2)
  1. PANITUMUMAB [Suspect]
     Indication: COLORECTAL CANCER
     Dosage: UNK UNK, UNK
     Dates: start: 20080526, end: 20080707
  2. FLUOROURACIL [Concomitant]
     Dosage: UNK UNK, UNK
     Dates: start: 20071105

REACTIONS (12)
  - ACTIVITIES OF DAILY LIVING IMPAIRED [None]
  - ANAEMIA [None]
  - DIARRHOEA [None]
  - DISEASE PROGRESSION [None]
  - DYSURIA [None]
  - MUSCULOSKELETAL STIFFNESS [None]
  - NAUSEA [None]
  - PALMAR-PLANTAR ERYTHRODYSAESTHESIA SYNDROME [None]
  - POLYNEUROPATHY [None]
  - PROCTALGIA [None]
  - RASH [None]
  - VOMITING [None]
